FAERS Safety Report 25506511 (Version 2)
Quarter: 2025Q3

REPORT INFORMATION
  Report Type: Spontaneous
  Country: CN (occurrence: CN)
  Receive Date: 20250702
  Receipt Date: 20250703
  Transmission Date: 20251020
  Serious: Yes (Other)
  Sender: ELI LILLY AND COMPANY
  Company Number: CN-ELI_LILLY_AND_COMPANY-CN202506024144

PATIENT
  Age: 59 Year
  Sex: Female
  Weight: 55 kg

DRUGS (4)
  1. ABEMACICLIB [Suspect]
     Active Substance: ABEMACICLIB
     Indication: Breast cancer
     Dosage: 150 MG, BID
     Route: 048
     Dates: start: 20250411, end: 20250621
  2. ABEMACICLIB [Suspect]
     Active Substance: ABEMACICLIB
     Indication: Anaemia
  3. ABEMACICLIB [Suspect]
     Active Substance: ABEMACICLIB
     Indication: Hypertension
  4. ABEMACICLIB [Suspect]
     Active Substance: ABEMACICLIB
     Indication: Tumour marker increased

REACTIONS (1)
  - Myelosuppression [Recovering/Resolving]

NARRATIVE: CASE EVENT DATE: 20250621
